FAERS Safety Report 10072474 (Version 1)
Quarter: 2014Q2

REPORT INFORMATION
  Report Type: Spontaneous
  Country: US (occurrence: None)
  Receive Date: 20140410
  Receipt Date: 20140410
  Transmission Date: 20141212
  Serious: Yes (Other)
  Sender: FDA-Public Use
  Company Number: None

PATIENT
  Age: 14 Year
  Sex: Female

DRUGS (1)
  1. ALKA SELTZER PLUS [Suspect]
     Dosage: 2 GELCAPS
     Dates: start: 20140405, end: 20140405

REACTIONS (5)
  - Syncope [None]
  - Pallor [None]
  - Lethargy [None]
  - Convulsion [None]
  - Muscle twitching [None]
